FAERS Safety Report 9238970 (Version 1)
Quarter: 2013Q2

REPORT INFORMATION
  Report Type: Spontaneous
  Country: US (occurrence: US)
  Receive Date: 20130418
  Receipt Date: 20130418
  Transmission Date: 20140414
  Serious: No
  Sender: FDA-Public Use
  Company Number: US-BAYER-2013-038334

PATIENT
  Sex: Female

DRUGS (4)
  1. MIDOL EXTENDED RELIEF CAPLET [Suspect]
     Indication: PAIN
     Dosage: 2 DF,
  2. MIRENA [Suspect]
  3. MOTRIN [Concomitant]
  4. IBUPROFEN [Concomitant]

REACTIONS (2)
  - Drug ineffective [None]
  - Procedural pain [None]
